FAERS Safety Report 13552827 (Version 1)
Quarter: 2017Q2

REPORT INFORMATION
  Report Type: Spontaneous
  Country: BR (occurrence: BR)
  Receive Date: 20170517
  Receipt Date: 20170517
  Transmission Date: 20170830
  Serious: Yes (Other)
  Sender: FDA-Public Use
  Company Number: BR-ASTRAZENECA-2017SE51130

PATIENT
  Age: 68 Year
  Sex: Female
  Weight: 90.8 kg

DRUGS (9)
  1. METOPROLOL SUCCINATE. [Suspect]
     Active Substance: METOPROLOL SUCCINATE
     Route: 048
  2. ASA [Concomitant]
     Active Substance: ASPIRIN
  3. CANDESARTAN + HCTZ [Suspect]
     Active Substance: CANDESARTAN CILEXETIL\HYDROCHLOROTHIAZIDE
     Dosage: CANDESARTAN 16 MG + HCTZ 25 MG DAILY
     Route: 048
  4. METOPROLOL SUCCINATE. [Suspect]
     Active Substance: METOPROLOL SUCCINATE
     Route: 048
  5. OLMESARTAN [Concomitant]
     Active Substance: OLMESARTAN
  6. ATORVASTATIN [Concomitant]
     Active Substance: ATORVASTATIN
  7. ROSUVASTATIN. [Concomitant]
     Active Substance: ROSUVASTATIN
  8. EZETIMIBE. [Concomitant]
     Active Substance: EZETIMIBE
     Dosage: 10 MG
  9. AMLODIPINE [Concomitant]
     Active Substance: AMLODIPINE BESYLATE

REACTIONS (9)
  - Atrial pressure increased [Unknown]
  - Obesity [Unknown]
  - Ejection fraction decreased [Unknown]
  - Dyslipidaemia [Unknown]
  - Carotid arteriosclerosis [Unknown]
  - Electrocardiogram abnormal [Unknown]
  - Ventricular hypokinesia [Unknown]
  - Blood pressure increased [Recovered/Resolved]
  - Fatigue [Recovered/Resolved]
